FAERS Safety Report 14536558 (Version 1)
Quarter: 2018Q1

REPORT INFORMATION
  Report Type: Spontaneous
  Country: US (occurrence: US)
  Receive Date: 20180215
  Receipt Date: 20180215
  Transmission Date: 20180509
  Serious: Yes (Hospitalization)
  Sender: FDA-Public Use
  Company Number: None

PATIENT
  Age: 79 Year
  Sex: Male
  Weight: 97.2 kg

DRUGS (16)
  1. ZAROXOLYN [Concomitant]
     Active Substance: METOLAZONE
  2. PACERONE [Concomitant]
     Active Substance: AMIODARONE HYDROCHLORIDE
  3. SYNTHROID [Concomitant]
     Active Substance: LEVOTHYROXINE SODIUM
  4. SPIRONOLACTONE. [Concomitant]
     Active Substance: SPIRONOLACTONE
     Indication: HYPERTENSION
     Dosage: CHRONIC
     Route: 048
  5. OSCAL [Concomitant]
     Active Substance: CALCIUM CARBONATE
  6. COQ10 [Concomitant]
     Active Substance: UBIDECARENONE
  7. ALLEGRA [Concomitant]
     Active Substance: FEXOFENADINE HYDROCHLORIDE
  8. WARFARIN [Concomitant]
     Active Substance: WARFARIN
  9. FISH [Concomitant]
     Active Substance: FISH
  10. BENAZEPRIL [Suspect]
     Active Substance: BENAZEPRIL HYDROCHLORIDE
     Indication: HYPERTENSION
     Dosage: CHRONIC
     Route: 048
  11. VITD [Concomitant]
  12. ASA [Concomitant]
     Active Substance: ASPIRIN
  13. APAP [Concomitant]
     Active Substance: ACETAMINOPHEN
  14. LASIX [Concomitant]
     Active Substance: FUROSEMIDE
  15. MEVACOR [Concomitant]
     Active Substance: LOVASTATIN
  16. TOPROL XL [Concomitant]
     Active Substance: METOPROLOL SUCCINATE

REACTIONS (3)
  - Therapy cessation [None]
  - Renal failure [None]
  - Hyperkalaemia [None]

NARRATIVE: CASE EVENT DATE: 20170706
